FAERS Safety Report 5177811-0 (Version None)
Quarter: 2006Q4

REPORT INFORMATION
  Report Type: 
  Country: None (occurrence: None)
  Receive Date: 20061208
  Receipt Date: 20061130
  Transmission Date: 20070319
  Serious: Yes (Life-Threatening, Hospitalization, Other)
  Sender: FDA-Public Use
  Company Number: 2006S1000183

PATIENT
  Age: 1 Day
  Sex: Male

DRUGS (13)
  1. NITRIC OXIDE [Suspect]
     Indication: NEONATAL RESPIRATORY DISTRESS SYNDROME PROPHYLAXIS
     Dosage: 5 PPM;CONT
     Route: 055
     Dates: start: 20060910, end: 20061001
  2. AMPICILLIN [Concomitant]
  3. AMIKACIN [Concomitant]
  4. SURVANTA [Concomitant]
  5. DOPAMINE HCL [Concomitant]
  6. FENTANYL [Concomitant]
  7. SODIUM BICARBONATE [Concomitant]
  8. SANDOGLOBULIN [Concomitant]
  9. METRONIDAZOLE [Concomitant]
  10. IBUPROFEN [Concomitant]
  11. CEFOTAXIME [Concomitant]
  12. VANCOMYCIN [Concomitant]
  13. CEFAZOLIN [Concomitant]

REACTIONS (15)
  - BETA HAEMOLYTIC STREPTOCOCCAL INFECTION [None]
  - BLOOD PRESSURE DIASTOLIC DECREASED [None]
  - GASTROINTESTINAL STOMA COMPLICATION [None]
  - GENERAL PHYSICAL HEALTH DETERIORATION [None]
  - HYPOTENSION [None]
  - INTESTINAL PERFORATION [None]
  - METABOLIC ACIDOSIS [None]
  - NECROTISING ENTEROCOLITIS NEONATAL [None]
  - PATENT DUCTUS ARTERIOSUS [None]
  - PNEUMOTHORAX [None]
  - PREMATURE BABY [None]
  - PULMONARY HYPERTENSION [None]
  - RESPIRATORY ACIDOSIS [None]
  - SEPSIS [None]
  - SEPSIS NEONATAL [None]
